FAERS Safety Report 10102117 (Version 2)
Quarter: 2014Q2

REPORT INFORMATION
  Report Type: Report from Study
  Country: GB (occurrence: GB)
  Receive Date: 20140424
  Receipt Date: 20140613
  Transmission Date: 20141212
  Serious: Yes (Death, Hospitalization)
  Sender: FDA-Public Use
  Company Number: GB-PFIZER INC-2014106107

PATIENT
  Age: 53 Year
  Sex: Male
  Weight: 66.2 kg

DRUGS (1)
  1. AXITINIB [Suspect]
     Indication: RENAL CELL CARCINOMA
     Dosage: 5 MG, 2X/DAY
     Dates: start: 20140313, end: 20140409

REACTIONS (6)
  - Nephrotic syndrome [Fatal]
  - Oedema peripheral [Unknown]
  - Pleural effusion [Unknown]
  - Proteinuria [Unknown]
  - Dyspnoea [Unknown]
  - Hyperkalaemia [Unknown]
